FAERS Safety Report 17530327 (Version 2)
Quarter: 2020Q1

REPORT INFORMATION
  Report Type: Spontaneous
  Country: JP (occurrence: JP)
  Receive Date: 20200312
  Receipt Date: 20200317
  Transmission Date: 20200409
  Serious: Yes (Hospitalization)
  Sender: FDA-Public Use
  Company Number: NVSJ2020JP003030

PATIENT
  Age: 25 Year
  Sex: Male
  Weight: 72.5 kg

DRUGS (13)
  1. LITHIUM CARBONATE. [Suspect]
     Active Substance: LITHIUM CARBONATE
     Indication: EUPHORIC MOOD
     Dosage: (600+200)
     Route: 048
     Dates: end: 20190520
  2. BIPERIDEN HYDROCHLORIDE [Concomitant]
     Active Substance: BIPERIDEN HYDROCHLORIDE
     Indication: EXTRAPYRAMIDAL DISORDER
     Dosage: 1 MG, QD
     Route: 048
     Dates: end: 20190520
  3. LOSIZOPILON [Concomitant]
     Active Substance: ZOTEPINE
     Dosage: 100 MG, QD
     Route: 048
     Dates: end: 20190520
  4. TEGRETOL [Suspect]
     Active Substance: CARBAMAZEPINE
     Dosage: 200 MG, QD
     Route: 048
     Dates: end: 20190520
  5. TEGRETOL [Suspect]
     Active Substance: CARBAMAZEPINE
     Indication: EUPHORIC MOOD
     Dosage: 1000 MG
     Route: 048
  6. LOSIZOPILON [Concomitant]
     Active Substance: ZOTEPINE
     Dosage: 250 MG
     Route: 048
  7. SERENACE [Concomitant]
     Active Substance: HALOPERIDOL
     Dosage: 6 MG
     Route: 048
  8. TEGRETOL [Suspect]
     Active Substance: CARBAMAZEPINE
     Dosage: UNK
     Route: 048
     Dates: end: 20190424
  9. LOSIZOPILON [Concomitant]
     Active Substance: ZOTEPINE
     Indication: SCHIZOPHRENIA
     Dosage: 450 MG
     Route: 048
  10. INVEGA [Concomitant]
     Active Substance: PALIPERIDONE
     Indication: SCHIZOPHRENIA
     Dosage: 12 MG, QD
     Route: 048
     Dates: start: 20190424, end: 20190520
  11. BELSOMRA [Concomitant]
     Active Substance: SUVOREXANT
     Indication: INSOMNIA
     Dosage: 100 MG, QD
     Route: 048
     Dates: end: 20190520
  12. SERENACE [Concomitant]
     Active Substance: HALOPERIDOL
     Indication: PRODUCT USED FOR UNKNOWN INDICATION
     Dosage: 12 MG
     Route: 048
  13. SERENACE [Concomitant]
     Active Substance: HALOPERIDOL
     Dosage: 1 MG
     Route: 048
     Dates: end: 20190520

REACTIONS (4)
  - Neuroleptic malignant syndrome [Recovering/Resolving]
  - Hepatic function abnormal [Recovering/Resolving]
  - Renal impairment [Recovering/Resolving]
  - Blood creatine phosphokinase increased [Recovering/Resolving]

NARRATIVE: CASE EVENT DATE: 20190520
